FAERS Safety Report 21868868 (Version 2)
Quarter: 2023Q1

REPORT INFORMATION
  Report Type: Spontaneous
  Country: US (occurrence: US)
  Receive Date: 20230117
  Receipt Date: 20230124
  Transmission Date: 20230417
  Serious: Yes (Other)
  Sender: FDA-Public Use
  Company Number: US-CIPLA LTD.-2023US00237

PATIENT
  Age: 27 Year
  Sex: Male

DRUGS (12)
  1. GEMCITABINE [Suspect]
     Active Substance: GEMCITABINE
     Indication: Mixed hepatocellular cholangiocarcinoma
     Dosage: 800 MG/M2,ON DAYS 1 AND 8 OF 21-DAY CYCLE
     Route: 042
  2. GEMCITABINE [Suspect]
     Active Substance: GEMCITABINE
     Indication: Metastases to lung
  3. GEMCITABINE [Suspect]
     Active Substance: GEMCITABINE
     Indication: Metastases to abdominal cavity
  4. CISPLATIN [Suspect]
     Active Substance: CISPLATIN
     Indication: Metastases to abdominal cavity
     Dosage: 20 MG/M2, ON DAYS 1 AND 8 OF 21-DAY CYCLE
     Route: 042
  5. CISPLATIN [Suspect]
     Active Substance: CISPLATIN
     Indication: Metastases to lung
  6. CISPLATIN [Suspect]
     Active Substance: CISPLATIN
     Indication: Mixed hepatocellular cholangiocarcinoma
  7. LENVATINIB [Suspect]
     Active Substance: LENVATINIB
     Indication: Mixed hepatocellular cholangiocarcinoma
     Dosage: 8 MILLIGRAM, QD
     Route: 048
  8. LENVATINIB [Suspect]
     Active Substance: LENVATINIB
     Indication: Metastases to lung
  9. LENVATINIB [Suspect]
     Active Substance: LENVATINIB
     Indication: Metastases to abdominal cavity
  10. UNSPECIFIED INGREDIENT [Suspect]
     Active Substance: UNSPECIFIED INGREDIENT
     Indication: Pulmonary embolism
     Dosage: 1 MG/KG TWICE DAILY
     Route: 058
  11. VALPROATE SODIUM [Concomitant]
     Active Substance: VALPROATE SODIUM
     Indication: Seizure
     Dosage: 1000 MILLIGRAM, QD
     Route: 065
  12. LEVETIRACETAM [Concomitant]
     Active Substance: LEVETIRACETAM
     Indication: Seizure
     Dosage: 500 MILLIGRAM, BID
     Route: 065

REACTIONS (2)
  - Gastrointestinal haemorrhage [Recovered/Resolved]
  - Thrombocytopenia [Unknown]
